FAERS Safety Report 6433997-9 (Version None)
Quarter: 2009Q4

REPORT INFORMATION
  Report Type: 
  Country: None (occurrence: None)
  Receive Date: 20091110
  Receipt Date: 20091028
  Transmission Date: 20100525
  Serious: Yes (Hospitalization, Other)
  Sender: FDA-Public Use
  Company Number: PHHY2009FR01847

PATIENT
  Sex: Male

DRUGS (5)
  1. LESCOL [Suspect]
     Indication: ISCHAEMIC HEART DISEASE PROPHYLAXIS
     Dosage: 20 MG/DAY
  2. SPIFEN [Suspect]
     Dosage: 3 DAILY DOSES
     Route: 048
     Dates: start: 20081025
  3. DETENSIEL [Suspect]
     Indication: MYOCARDIAL ISCHAEMIA
     Dosage: 10 MG
     Route: 048
  4. RENITEC [Suspect]
     Indication: MYOCARDIAL ISCHAEMIA
     Dosage: 10MG 2 DAILY DOSES
     Route: 048
  5. KARDEGIC [Suspect]
     Indication: MYOCARDIAL ISCHAEMIA
     Dosage: 1 DAILY DOSE
     Route: 048

REACTIONS (19)
  - ASCITES [None]
  - BLOOD CREATININE INCREASED [None]
  - BLOOD UREA INCREASED [None]
  - CATARACT [None]
  - CREATININE RENAL CLEARANCE DECREASED [None]
  - DYSPNOEA [None]
  - GLOMERULONEPHRITIS MEMBRANOUS [None]
  - HYPERGLYCAEMIA [None]
  - HYPERKALAEMIA [None]
  - HYPOALBUMINAEMIA [None]
  - LEUKOCYTURIA [None]
  - LIVER INJURY [None]
  - NEPHROPATHY [None]
  - NEPHROTIC SYNDROME [None]
  - OEDEMA [None]
  - OLIGURIA [None]
  - PROTEINURIA [None]
  - RENAL FAILURE ACUTE [None]
  - SPINAL COLUMN INJURY [None]
